FAERS Safety Report 9145340 (Version 1)
Quarter: 2013Q1

REPORT INFORMATION
  Report Type: Spontaneous
  Country: FR (occurrence: FR)
  Receive Date: 20130307
  Receipt Date: 20130307
  Transmission Date: 20140127
  Serious: Yes (Hospitalization)
  Sender: FDA-Public Use
  Company Number: FR-009507513-1302FRA012273

PATIENT
  Age: 32 Year
  Sex: Female

DRUGS (3)
  1. ORGALUTRAN [Suspect]
     Route: 058
  2. FOSTIMON [Suspect]
     Indication: OVARIAN HYPERSTIMULATION SYNDROME
     Dosage: UNK
     Route: 058
  3. OROMONE [Concomitant]

REACTIONS (3)
  - Ovarian hyperstimulation syndrome [Recovered/Resolved]
  - Ascites [Recovered/Resolved]
  - Dyspnoea [Recovered/Resolved]
